FAERS Safety Report 6285265 (Version 18)
Quarter: 2014Q1

REPORT INFORMATION
  Report Type: Spontaneous
  Country: US (occurrence: US)
  Receive Date: 20070411
  Receipt Date: 20140128
  Transmission Date: 20141002
  Serious: Yes (Death, Hospitalization, Other)
  Sender: FDA-Public Use
  Company Number: PHEH2007US03717

PATIENT
  Age: 52 Year
  Sex: Female
  Weight: 93.79 kg

DRUGS (41)
  1. ZOMETA [Suspect]
     Indication: PLASMA CELL MYELOMA
     Route: 042
  2. AREDIA [Suspect]
     Dosage: 90 MG
     Route: 042
  3. PAXIL [Concomitant]
     Dosage: 60 MG,
  4. TRAZODONE [Concomitant]
     Dosage: 100 MG, QHS
     Route: 048
  5. CLONAZEPAM [Concomitant]
     Dosage: 0.5MG QAM AND 1.0MG QPM
  6. LASIX [Concomitant]
     Dosage: 20 MG,
  7. K-TAB [Concomitant]
     Dosage: 10 MEQ, QID
  8. LORTAB [Concomitant]
     Dosage: 7.5/500 MG,
  9. REGLAN                                  /USA/ [Concomitant]
     Dosage: 10 MG,
  10. XANAX [Concomitant]
     Dosage: 0.5 MG, BID
     Route: 048
  11. MVI [Concomitant]
     Dosage: 1 DF, QD
  12. MORPHINE [Concomitant]
  13. MAGNESIUM OXIDE [Concomitant]
     Dosage: 800 MG, BID
     Route: 048
  14. FOSINOPRIL [Concomitant]
     Dosage: 40 MG, QD
     Route: 048
  15. HYDROCODONE W/ACETAMINOPHEN [Concomitant]
     Dosage: 10/500MG,
  16. FENTANYL [Concomitant]
     Dosage: 25 UG, QH
     Route: 062
  17. CIPROFLOXACIN [Concomitant]
     Dosage: 500 MG,
  18. INNOHEP                                 /GFR/ [Concomitant]
     Route: 065
  19. CARVEDILOL [Concomitant]
     Dosage: 25 MG,
  20. COREG [Concomitant]
     Dosage: 2 DF, BID
  21. MULTIVITAMINS [Concomitant]
  22. ROBAXIN [Concomitant]
     Dosage: 750 MG, PRN
  23. DURAGESIC [Concomitant]
     Dosage: 25 UG, PRN
  24. DECADRON                                /CAN/ [Concomitant]
     Dosage: 4 MG, PRN
  25. CORTEF                                  /CAN/ [Concomitant]
     Dosage: 10 MG, QD
  26. MONOPRIL [Concomitant]
  27. CLARITIN [Concomitant]
  28. DRISDOL [Concomitant]
  29. ENDOCET [Concomitant]
  30. CYANOCOBALAMIN [Concomitant]
  31. NEURONTIN [Concomitant]
  32. LOMOTIL [Concomitant]
  33. INSULIN [Concomitant]
  34. NORVASC                                 /DEN/ [Concomitant]
  35. K-DUR [Concomitant]
  36. FLUVACCIN [Concomitant]
  37. PNEUMOVAX [Concomitant]
  38. ALDACTONE [Concomitant]
  39. KLONOPIN [Concomitant]
  40. ULTRAM [Concomitant]
  41. ZOSTRIX [Concomitant]

REACTIONS (124)
  - Cardiac arrest [Fatal]
  - Bacteraemia [Unknown]
  - Subacute endocarditis [Unknown]
  - Osteonecrosis of jaw [Unknown]
  - Dental caries [Unknown]
  - Tooth fracture [Unknown]
  - Tenderness [Unknown]
  - Swelling face [Unknown]
  - Abscess [Unknown]
  - Injury [Unknown]
  - Pain [Unknown]
  - Anxiety [Unknown]
  - Decreased interest [Unknown]
  - Osteomyelitis [Unknown]
  - Oral pain [Not Recovered/Not Resolved]
  - Eating disorder [Unknown]
  - Mouth ulceration [Unknown]
  - Gingivitis [Unknown]
  - Bone disorder [Unknown]
  - Inflammation [Unknown]
  - Gingival erythema [Unknown]
  - Cheilitis [Unknown]
  - Oral discomfort [Unknown]
  - Dental fistula [Unknown]
  - Tooth abscess [Unknown]
  - Primary sequestrum [Unknown]
  - Nausea [Unknown]
  - Vomiting [Unknown]
  - Deep vein thrombosis [Unknown]
  - Depression [Unknown]
  - Migraine [Unknown]
  - Breast calcifications [Unknown]
  - Breast cyst [Unknown]
  - Diverticulum intestinal [Unknown]
  - Diabetes mellitus [Unknown]
  - Addison^s disease [Unknown]
  - Congestive cardiomyopathy [Unknown]
  - Aortic valve incompetence [Unknown]
  - Dilatation ventricular [Unknown]
  - Pulmonary valve incompetence [Unknown]
  - Ejection fraction decreased [Unknown]
  - Pericardial effusion [Unknown]
  - Aortic valve disease [Unknown]
  - Tricuspid valve incompetence [Unknown]
  - Mitral valve incompetence [Unknown]
  - Dilatation atrial [Unknown]
  - Left ventricular hypertrophy [Unknown]
  - Mitral valve disease [Unknown]
  - Pneumonia [Unknown]
  - Impaired gastric emptying [Unknown]
  - Skeletal injury [Unknown]
  - Dyspnoea exertional [Unknown]
  - Hyperkalaemia [Unknown]
  - Diarrhoea [Unknown]
  - Oedema [Unknown]
  - Sleep disorder [Unknown]
  - Palpitations [Unknown]
  - Edentulous [Unknown]
  - Intervertebral disc degeneration [Unknown]
  - Pathological fracture [Unknown]
  - Pulmonary mass [Unknown]
  - Hepatomegaly [Unknown]
  - Cardiomegaly [Unknown]
  - Atelectasis [Unknown]
  - Brain neoplasm [Unknown]
  - Chronic sinusitis [Unknown]
  - Proteinuria [Unknown]
  - Folate deficiency [Unknown]
  - Neuropathy peripheral [Unknown]
  - Hypercalcaemia [Unknown]
  - Hyperparathyroidism secondary [Unknown]
  - Lactose intolerance [Unknown]
  - Glaucoma [Unknown]
  - Anogenital warts [Unknown]
  - Urinary tract infection [Unknown]
  - Osteoarthritis [Unknown]
  - Radiculopathy [Unknown]
  - Haematoma [Unknown]
  - Arteriosclerosis [Unknown]
  - Brain mass [Unknown]
  - Vasogenic cerebral oedema [Unknown]
  - Oropharyngeal pain [Unknown]
  - Dry mouth [Unknown]
  - Musculoskeletal stiffness [Unknown]
  - Snoring [Unknown]
  - Hypopnoea [Unknown]
  - Obesity [Unknown]
  - Osteolysis [Unknown]
  - Breast cancer [Unknown]
  - Second primary malignancy [Unknown]
  - Bone lesion [Unknown]
  - Fall [Unknown]
  - Arthralgia [Unknown]
  - Pain in extremity [Unknown]
  - Visual impairment [Unknown]
  - Respiratory tract infection [Unknown]
  - Mobility decreased [Unknown]
  - Thrombocytopenia [Unknown]
  - Plasmacytosis [Unknown]
  - Paraproteinaemia [Unknown]
  - Pulmonary embolism [Unknown]
  - Rectal polyp [Unknown]
  - Cushing^s syndrome [Unknown]
  - Syncope [Unknown]
  - Dehydration [Unknown]
  - Lymph node calcification [Unknown]
  - Exostosis [Unknown]
  - Spinal osteoarthritis [Unknown]
  - Vena cava thrombosis [Unknown]
  - Hepatic steatosis [Unknown]
  - Facet joint syndrome [Unknown]
  - Muscular weakness [Unknown]
  - Gait disturbance [Unknown]
  - Mental status changes [Unknown]
  - Flank pain [Unknown]
  - Hip fracture [Recovered/Resolved]
  - Sinus tachycardia [Unknown]
  - Cardiac failure congestive [Recovered/Resolved]
  - Adrenal insufficiency [Recovered/Resolved]
  - Renal failure chronic [Recovered/Resolved]
  - Thalassaemia beta [Recovered/Resolved]
  - Foot deformity [Unknown]
  - Femur fracture [Unknown]
  - Back pain [Recovered/Resolved]
